FAERS Safety Report 10541328 (Version 1)
Quarter: 2014Q4

REPORT INFORMATION
  Report Type: Spontaneous
  Country: US (occurrence: None)
  Receive Date: 20141010
  Receipt Date: 20141010
  Transmission Date: 20150529
  Serious: No
  Sender: FDA-Public Use
  Company Number: 163-POMAL-14061847

PATIENT
  Age: 50 Year
  Sex: Female
  Weight: 106.6 kg

DRUGS (7)
  1. DEXAMETHASONE. [Concomitant]
     Active Substance: DEXAMETHASONE
  2. METFORMIN HCL (METFORMIN HYDROCHLORIDE) (TABLETS) [Concomitant]
  3. TYLENOL [Concomitant]
     Active Substance: ACETAMINOPHEN
  4. POMALYST [Suspect]
     Active Substance: POMALIDOMIDE
     Indication: PLASMA CELL MYELOMA
     Route: 048
     Dates: start: 201404
  5. KLONOPIN [Concomitant]
     Active Substance: CLONAZEPAM
  6. DILAUDID (HYDROMORPHINE HYDROCHLORIDE) [Concomitant]
  7. TRAVATAN Z (TRAVAPOST) (EYE DROPS) [Concomitant]

REACTIONS (3)
  - Blister [None]
  - Back pain [None]
  - Oedema peripheral [None]

NARRATIVE: CASE EVENT DATE: 2014
